FAERS Safety Report 22518387 (Version 1)
Quarter: 2023Q2

REPORT INFORMATION
  Report Type: Spontaneous
  Country: US (occurrence: None)
  Receive Date: 20230605
  Receipt Date: 20230605
  Transmission Date: 20230721
  Serious: No
  Sender: FDA-Public Use
  Company Number: 2023A120915

PATIENT
  Age: 74 Year
  Sex: Male

DRUGS (1)
  1. BRILINTA [Suspect]
     Active Substance: TICAGRELOR
     Indication: Stent placement
     Route: 048
     Dates: start: 20230522

REACTIONS (6)
  - Erythema [Not Recovered/Not Resolved]
  - Erythema [Not Recovered/Not Resolved]
  - Blister [Not Recovered/Not Resolved]
  - Swelling [Not Recovered/Not Resolved]
  - Skin discolouration [Not Recovered/Not Resolved]
  - Pruritus [Not Recovered/Not Resolved]

NARRATIVE: CASE EVENT DATE: 20230523
